FAERS Safety Report 10995841 (Version 1)
Quarter: 2015Q2

REPORT INFORMATION
  Report Type: Spontaneous
  Country: US (occurrence: US)
  Receive Date: 20150407
  Receipt Date: 20150407
  Transmission Date: 20150821
  Serious: No
  Sender: FDA-Public Use
  Company Number: US-ELI_LILLY_AND_COMPANY-US201503004473

PATIENT
  Sex: Male

DRUGS (1)
  1. CYMBALTA [Suspect]
     Active Substance: DULOXETINE HYDROCHLORIDE
     Indication: NEURALGIA
     Dosage: 30 MG, QD
     Route: 065
     Dates: start: 20150307, end: 20150309

REACTIONS (5)
  - Intraocular pressure test abnormal [Unknown]
  - Expired product administered [Unknown]
  - Vision blurred [Unknown]
  - Off label use [Unknown]
  - Visual impairment [Unknown]
